FAERS Safety Report 7403337-7 (Version None)
Quarter: 2011Q2

REPORT INFORMATION
  Report Type: 
  Country: None (occurrence: None)
  Receive Date: 20110408
  Receipt Date: 20110331
  Transmission Date: 20111010
  Serious: Yes (Hospitalization)
  Sender: FDA-Public Use
  Company Number: DE-AMGEN-KDC411814

PATIENT
  Age: 55 Year
  Sex: Male
  Weight: 115 kg

DRUGS (5)
  1. ASPIRIN [Concomitant]
  2. PREDNISOLONE [Concomitant]
     Dosage: 40 MG, UNK
  3. ROMIPLOSTIM [Suspect]
     Indication: IDIOPATHIC THROMBOCYTOPENIC PURPURA
     Dosage: UNK UNK, QWK
     Route: 058
     Dates: start: 20090904
  4. ZEFFIX [Concomitant]
  5. BERLOSIN [Concomitant]
     Dosage: 20 MG, UNK

REACTIONS (1)
  - ENDOCARDITIS [None]
